FAERS Safety Report 12164279 (Version 1)
Quarter: 2016Q1

REPORT INFORMATION
  Report Type: Spontaneous
  Country: US (occurrence: US)
  Receive Date: 20160309
  Receipt Date: 20160309
  Transmission Date: 20160526
  Serious: Yes (Other)
  Sender: FDA-Public Use
  Company Number: US-LPDUSPRD-20160197

PATIENT
  Sex: Male

DRUGS (1)
  1. VENOFER [Suspect]
     Active Substance: IRON SUCROSE
     Dosage: 50 MG WEEKLY
     Route: 065
     Dates: start: 20160224

REACTIONS (3)
  - Transferrin saturation decreased [Unknown]
  - Hypersomnia [Unknown]
  - Heart injury [Unknown]
